FAERS Safety Report 22721153 (Version 3)
Quarter: 2024Q3

REPORT INFORMATION
  Report Type: Spontaneous
  Country: US (occurrence: US)
  Receive Date: 20230719
  Receipt Date: 20240723
  Transmission Date: 20241017
  Serious: No
  Sender: OTSUKA
  Company Number: US-OTSUKA-2022_039933

PATIENT
  Sex: Female
  Weight: 90.72 kg

DRUGS (4)
  1. ABILIFY [Suspect]
     Active Substance: ARIPIPRAZOLE
     Indication: Delusion
     Dosage: UNK
     Route: 065
     Dates: start: 200105
  2. ABILIFY [Suspect]
     Active Substance: ARIPIPRAZOLE
     Indication: Hallucination
  3. ABILIFY [Suspect]
     Active Substance: ARIPIPRAZOLE
     Indication: Sleep disorder
  4. REXULTI [Suspect]
     Active Substance: BREXPIPRAZOLE
     Indication: Product used for unknown indication
     Dosage: UNK
     Route: 065

REACTIONS (9)
  - Eye disorder [Unknown]
  - Stress [Unknown]
  - Mental disorder [Unknown]
  - Visual impairment [Unknown]
  - Self-injurious ideation [Unknown]
  - Sleep disorder [Unknown]
  - Weight increased [Unknown]
  - Product use in unapproved indication [Unknown]
  - Product use issue [Unknown]
